FAERS Safety Report 7007091-2 (Version None)
Quarter: 2010Q3

REPORT INFORMATION
  Report Type: 
  Country: None (occurrence: None)
  Receive Date: 20100922
  Receipt Date: 20100908
  Transmission Date: 20110219
  Serious: Yes (Other)
  Sender: FDA-Public Use
  Company Number: US-RANBAXY-2010RR-38209

PATIENT
  Sex: Male

DRUGS (6)
  1. CIPROFLOXACIN [Suspect]
     Indication: INFECTION
     Dosage: UNK
     Dates: start: 20040114
  2. LEVAQUIN [Suspect]
     Indication: RESPIRATORY TRACT INFECTION
     Dosage: UNK
     Route: 048
     Dates: start: 20040331
  3. LEVAQUIN [Suspect]
     Indication: BRONCHITIS
     Dosage: UNK
     Dates: start: 20071003
  4. LEVAQUIN [Suspect]
     Indication: PNEUMONIA
     Dosage: UNK
     Dates: start: 20071101
  5. LEVAQUIN [Suspect]
     Dosage: UNK
     Dates: start: 20080104
  6. LEVAQUIN [Suspect]
     Dosage: UNK
     Dates: start: 20090209

REACTIONS (6)
  - ANXIETY [None]
  - ARTHRITIS [None]
  - DEPRESSION [None]
  - MENISCUS LESION [None]
  - TENDON RUPTURE [None]
  - TENDONITIS [None]
